FAERS Safety Report 25715392 (Version 1)
Quarter: 2025Q3

REPORT INFORMATION
  Report Type: Spontaneous
  Country: US (occurrence: None)
  Receive Date: 20250821
  Receipt Date: 20250821
  Transmission Date: 20251020
  Serious: No
  Sender: FDA-CTU
  Company Number: None

PATIENT
  Age: 26 Year
  Sex: Female
  Weight: 46.17 kg

DRUGS (1)
  1. 7-HYDROXYMITRAGYNINE [Suspect]
     Active Substance: 7-HYDROXYMITRAGYNINE
     Dates: start: 20250821

REACTIONS (3)
  - Dizziness [None]
  - Somnolence [None]
  - Impaired work ability [None]

NARRATIVE: CASE EVENT DATE: 20250821
